FAERS Safety Report 7622531-3 (Version None)
Quarter: 2011Q3

REPORT INFORMATION
  Report Type: 
  Country: None (occurrence: None)
  Receive Date: 20110701
  Receipt Date: 20101018
  Transmission Date: 20111222
  Serious: Yes (Other)
  Sender: FDA-Public Use
  Company Number: 7023321

PATIENT
  Age: 48 Year
  Sex: Female
  Weight: 61 kg

DRUGS (6)
  1. ACETAMINOPHEN [Concomitant]
  2. IBUPROFEN (ADVIL) [Concomitant]
  3. LEVOTHYROXINE SODIUM [Concomitant]
  4. WELLBUTRIN (IBUPROFEN) [Concomitant]
  5. REBIF [Suspect]
     Indication: MULTIPLE SCLEROSIS
     Dosage: 44 MCG, 3 IN 1 WK, SUBCUTANEOUS
     Route: 058
     Dates: start: 20030101
  6. NAPROXEN [Concomitant]

REACTIONS (5)
  - ABDOMINAL DISCOMFORT [None]
  - INJECTION SITE ERYTHEMA [None]
  - PAIN [None]
  - FATIGUE [None]
  - OVARIAN GERM CELL TERATOMA BENIGN [None]
